FAERS Safety Report 25271487 (Version 6)
Quarter: 2025Q3

REPORT INFORMATION
  Report Type: Report from Study
  Country: US (occurrence: US)
  Receive Date: 20250506
  Receipt Date: 20250912
  Transmission Date: 20251021
  Serious: Yes (Other)
  Sender: TAKEDA
  Company Number: US-TAKEDA-2025TUS013039

PATIENT
  Age: 54 Year
  Sex: Male

DRUGS (2)
  1. VEDOLIZUMAB [Suspect]
     Active Substance: VEDOLIZUMAB
     Indication: Crohn^s disease
     Dosage: 300 MILLIGRAM, Q6WEEKS
     Dates: start: 2019
  2. VEDOLIZUMAB [Suspect]
     Active Substance: VEDOLIZUMAB

REACTIONS (10)
  - Neuropathy peripheral [Not Recovered/Not Resolved]
  - Inappropriate schedule of product administration [Unknown]
  - Swelling face [Not Recovered/Not Resolved]
  - Sinus congestion [Not Recovered/Not Resolved]
  - Vitamin B12 deficiency [Unknown]
  - Vitamin B6 decreased [Unknown]
  - Product dose omission issue [Unknown]
  - Ear infection [Recovered/Resolved]
  - Chest pain [Not Recovered/Not Resolved]
  - Pain in extremity [Not Recovered/Not Resolved]

NARRATIVE: CASE EVENT DATE: 20241001
